FAERS Safety Report 23574855 (Version 1)
Quarter: 2024Q1

REPORT INFORMATION
  Report Type: Spontaneous
  Country: CA (occurrence: CA)
  Receive Date: 20240228
  Receipt Date: 20240228
  Transmission Date: 20240410
  Serious: Yes (Hospitalization, Other)
  Sender: FDA-Public Use
  Company Number: CA-B.Braun Medical Inc.-2153748

PATIENT
  Age: 35 Year
  Sex: Female

DRUGS (15)
  1. ACETAMINOPHEN [Suspect]
     Active Substance: ACETAMINOPHEN
  2. UNSPECIFIED INGREDIENT [Suspect]
     Active Substance: UNSPECIFIED INGREDIENT
  3. SUMATRIPTAN [Suspect]
     Active Substance: SUMATRIPTAN
  4. SODIUM BICARBONATE [Suspect]
     Active Substance: SODIUM BICARBONATE
  5. PYRIDOXINE [Suspect]
     Active Substance: PYRIDOXINE
  6. PROCHLORPERAZINE [Suspect]
     Active Substance: PROCHLORPERAZINE
  7. ONDANSETRON HYDROCHLORIDE [Suspect]
     Active Substance: ONDANSETRON HYDROCHLORIDE
  8. ONDANSETRON [Suspect]
     Active Substance: ONDANSETRON
  9. METOCLOPRAMIDE [Suspect]
     Active Substance: METOCLOPRAMIDE
  10. LORAZEPAM [Suspect]
     Active Substance: LORAZEPAM
  11. FAMOTIDINE [Suspect]
     Active Substance: FAMOTIDINE
  12. DOXYLAMINE SUCCINATE\PYRIDOXINE HYDROCHLORIDE [Suspect]
     Active Substance: DOXYLAMINE SUCCINATE\PYRIDOXINE HYDROCHLORIDE
  13. DOXYLAMINE [Suspect]
     Active Substance: DOXYLAMINE
  14. DIMENHYDRINATE [Suspect]
     Active Substance: DIMENHYDRINATE
  15. DEXTROSE [Suspect]
     Active Substance: DEXTROSE\DEXTROSE MONOHYDRATE

REACTIONS (8)
  - Abortion spontaneous [Recovered/Resolved]
  - Serotonin syndrome [Recovered/Resolved]
  - Off label use [Recovered/Resolved]
  - Maternal exposure during pregnancy [Recovered/Resolved]
  - Exposure during pregnancy [Recovered/Resolved]
  - Drug ineffective for unapproved indication [Recovered/Resolved]
  - Drug ineffective [Recovered/Resolved]
  - Anaphylactic reaction [Recovered/Resolved]
